FAERS Safety Report 25269777 (Version 2)
Quarter: 2025Q2

REPORT INFORMATION
  Report Type: Spontaneous
  Country: US (occurrence: US)
  Receive Date: 20250505
  Receipt Date: 20250527
  Transmission Date: 20250716
  Serious: No
  Sender: FRESENIUS KABI
  Company Number: US-FreseniusKabi-FK202506542

PATIENT
  Age: 2 Day
  Sex: Male
  Weight: 0.9 kg

DRUGS (6)
  1. GENTAMICIN [Suspect]
     Active Substance: GENTAMICIN
     Indication: Sepsis
     Dosage: FORM OF ADMINISTRATION: INJECTION?10 MG/ML, 2 ML VIAL?5 MG/KG (4.5 MG) FIRST DOSE GIVEN ON 17-APR-20
     Route: 042
     Dates: start: 20250417
  2. AMPICILLIN [Concomitant]
     Active Substance: AMPICILLIN
     Indication: Product used for unknown indication
  3. Caffeine injection [Concomitant]
     Indication: Product used for unknown indication
  4. ERYTHROMYCIN [Concomitant]
     Active Substance: ERYTHROMYCIN
     Indication: Product used for unknown indication
     Route: 047
  5. VITAMIN K [Concomitant]
     Active Substance: PHYTONADIONE
     Indication: Product used for unknown indication
  6. Poractant alfa intratracheal suspension [Concomitant]
     Indication: Product used for unknown indication
     Route: 039

REACTIONS (1)
  - Therapeutic product effect decreased [Unknown]

NARRATIVE: CASE EVENT DATE: 20250419
